FAERS Safety Report 5387409-7 (Version None)
Quarter: 2007Q3

REPORT INFORMATION
  Report Type: 
  Country: None (occurrence: None)
  Receive Date: 20070711
  Receipt Date: 20070711
  Transmission Date: 20080115
  Serious: No
  Sender: FDA-Public Use
  Company Number: None

PATIENT

DRUGS (1)
  1. AMIODARONE HCL [Suspect]

REACTIONS (13)
  - ANOREXIA [None]
  - ASTHENIA [None]
  - CHEST PAIN [None]
  - DIZZINESS [None]
  - DRUG TOXICITY [None]
  - DYSPNOEA [None]
  - FATIGUE [None]
  - LABORATORY TEST ABNORMAL [None]
  - PERICARDIAL EFFUSION [None]
  - PULMONARY OEDEMA [None]
  - PULMONARY TOXICITY [None]
  - SCAR [None]
  - WHEEZING [None]
